FAERS Safety Report 21216484 (Version 1)
Quarter: 2022Q3

REPORT INFORMATION
  Report Type: Spontaneous
  Country: US (occurrence: US)
  Receive Date: 20220816
  Receipt Date: 20220816
  Transmission Date: 20221027
  Serious: No
  Sender: FDA-Public Use
  Company Number: US-PFIZER INC-PV202200042960

PATIENT
  Age: 55 Year
  Weight: 73.469 kg

DRUGS (3)
  1. NURTEC ODT [Suspect]
     Active Substance: RIMEGEPANT SULFATE
     Indication: Migraine
     Dosage: ROUTE: UNDER HER TONGUE, STARTED ABOUT THREE WEEKS AGO
     Route: 060
  2. LEVOTHYROXINE [Concomitant]
     Active Substance: LEVOTHYROXINE
     Indication: Thyroid disorder
     Dosage: UNK
  3. MODERNA COVID-19 VACCINE [Concomitant]
     Active Substance: ELASOMERAN
     Indication: COVID-19 prophylaxis
     Dosage: UNK

REACTIONS (10)
  - Drug ineffective [Unknown]
  - Product taste abnormal [Unknown]
  - Poor quality sleep [Unknown]
  - Swollen tongue [Unknown]
  - Peripheral swelling [Unknown]
  - Speech disorder [Unknown]
  - Rash [Recovering/Resolving]
  - Nausea [Unknown]
  - Nervousness [Unknown]
  - Swelling [Unknown]

NARRATIVE: CASE EVENT DATE: 20220601
